FAERS Safety Report 6842488-2 (Version None)
Quarter: 2010Q3

REPORT INFORMATION
  Report Type: 
  Country: None (occurrence: None)
  Receive Date: 20100714
  Receipt Date: 20071105
  Transmission Date: 20110219
  Serious: Yes (Other)
  Sender: FDA-Public Use
  Company Number: US-PFIZER INC-2007063816

PATIENT
  Sex: Female

DRUGS (7)
  1. CHANTIX [Suspect]
  2. MONTELUKAST SODIUM [Concomitant]
  3. ADVAIR DISKUS 100/50 [Concomitant]
  4. SPIRIVA [Concomitant]
  5. PREMARIN [Concomitant]
  6. XANAX [Concomitant]
  7. SALBUTAMOL [Concomitant]

REACTIONS (7)
  - DRY SKIN [None]
  - DYSPNOEA [None]
  - ILL-DEFINED DISORDER [None]
  - INCREASED UPPER AIRWAY SECRETION [None]
  - NASAL DISORDER [None]
  - NASAL DRYNESS [None]
  - TOBACCO USER [None]
